FAERS Safety Report 20725635 (Version 3)
Quarter: 2022Q2

REPORT INFORMATION
  Report Type: Spontaneous
  Country: US (occurrence: None)
  Receive Date: 20220419
  Receipt Date: 20220602
  Transmission Date: 20220720
  Serious: No
  Sender: FDA-Public Use
  Company Number: 2022A144443

PATIENT
  Age: 22204 Day
  Sex: Male

DRUGS (1)
  1. FASENRA [Suspect]
     Active Substance: BENRALIZUMAB
     Indication: Dyspnoea
     Dosage: 30.0MG/ML ONCE/SINGLE ADMINISTRATION
     Route: 058
     Dates: start: 20220405

REACTIONS (5)
  - Injection site pain [Unknown]
  - Off label use [Unknown]
  - Device use issue [Unknown]
  - Wrong technique in device usage process [Unknown]
  - Device leakage [Unknown]

NARRATIVE: CASE EVENT DATE: 20220405
